FAERS Safety Report 5091422-7 (Version None)
Quarter: 2006Q3

REPORT INFORMATION
  Report Type: 
  Country: None (occurrence: None)
  Receive Date: 20060727
  Receipt Date: 20060420
  Transmission Date: 20061208
  Serious: Yes (Other)
  Sender: FDA-Public Use
  Company Number: 2006054875

PATIENT
  Age: 66 Year
  Sex: Male
  Weight: 102.0593 kg

DRUGS (10)
  1. LYRICA [Suspect]
     Indication: GUILLAIN-BARRE SYNDROME
     Dosage: 150 MG (50 MG, 3 IN 1 D), UNKNOWN
     Dates: start: 20060417, end: 20060419
  2. LIPITOR [Concomitant]
  3. GLUCOPHAGE [Concomitant]
  4. GLIPIZIDE [Concomitant]
  5. ACTOS [Concomitant]
  6. COZAAR [Concomitant]
  7. PLETAL (CILOSTAZOL) [Concomitant]
  8. NORVASC [Concomitant]
  9. PERCOCET [Concomitant]
  10. OXYCONTIN [Concomitant]

REACTIONS (1)
  - TREMOR [None]
